FAERS Safety Report 4707028-2 (Version None)
Quarter: 2005Q3

REPORT INFORMATION
  Report Type: 
  Country: None (occurrence: None)
  Receive Date: 20050701
  Receipt Date: 20050701
  Transmission Date: 20060218
  Serious: Yes (Life-Threatening, Hospitalization, Disabling)
  Sender: FDA-Public Use
  Company Number: None

PATIENT
  Sex: Female
  Weight: 61.2356 kg

DRUGS (1)
  1. INTERFERON ALFA A [Suspect]
     Indication: HEPATITIS C
     Dosage: 1 MILLION UNITS 3 TIMES PER WEEK

REACTIONS (5)
  - LIVER DISORDER [None]
  - PLATELET COUNT DECREASED [None]
  - RED BLOOD CELL COUNT DECREASED [None]
  - SPLENOMEGALY [None]
  - THERAPY NON-RESPONDER [None]
